FAERS Safety Report 7525141-1 (Version None)
Quarter: 2011Q2

REPORT INFORMATION
  Report Type: 
  Country: None (occurrence: None)
  Receive Date: 20110526
  Receipt Date: 20110512
  Transmission Date: 20111010
  Serious: Yes (Other)
  Sender: FDA-Public Use
  Company Number: US-1186197

PATIENT
  Sex: Female

DRUGS (1)
  1. TROPICAMIDE [Suspect]
     Indication: OPHTHALMOLOGICAL EXAMINATION
     Dosage: 2 GTT OU, GIVEN 2 MORE GTTS OD / 1 MORE GTT OS (OPHTHALMIC)
     Route: 047

REACTIONS (7)
  - RETINAL HAEMORRHAGE [None]
  - COLOUR BLINDNESS [None]
  - VISUAL ACUITY REDUCED [None]
  - VISION BLURRED [None]
  - EYE PAIN [None]
  - PHOTOPSIA [None]
  - BLEPHAROSPASM [None]
